FAERS Safety Report 9446937 (Version 1)
Quarter: 2013Q3

REPORT INFORMATION
  Report Type: Spontaneous
  Country: US (occurrence: US)
  Receive Date: 20130807
  Receipt Date: 20130807
  Transmission Date: 20140515
  Serious: No
  Sender: FDA-Public Use
  Company Number: US-AMGEN-USASP2013050832

PATIENT
  Age: 67 Year
  Sex: Female

DRUGS (2)
  1. ENBREL [Suspect]
     Indication: RHEUMATOID ARTHRITIS
     Dosage: 50 UNK, UNK
     Route: 065
     Dates: start: 20120401
  2. METHOTREXATE [Concomitant]
     Dosage: 2.5 MG, UNK, 6 TABLETS WEEKLY
     Dates: start: 2011

REACTIONS (1)
  - Alopecia [Not Recovered/Not Resolved]
